FAERS Safety Report 12763840 (Version 1)
Quarter: 2016Q3

REPORT INFORMATION
  Report Type: Spontaneous
  Country: IT (occurrence: IT)
  Receive Date: 20160920
  Receipt Date: 20160920
  Transmission Date: 20161109
  Serious: Yes (Other)
  Sender: FDA-Public Use
  Company Number: IT-TEVA-692708ACC

PATIENT
  Age: 62 Year
  Sex: Male

DRUGS (2)
  1. QUETIAPINA FUMARATO [Suspect]
     Active Substance: QUETIAPINE FUMARATE
  2. PREGABALIN. [Suspect]
     Active Substance: PREGABALIN

REACTIONS (1)
  - Electrocardiogram ST-T change [Unknown]
